FAERS Safety Report 11214721 (Version 1)
Quarter: 2015Q2

REPORT INFORMATION
  Report Type: Spontaneous
  Country: US (occurrence: None)
  Receive Date: 20150622
  Receipt Date: 20150622
  Transmission Date: 20150821
  Serious: Yes (Hospitalization)
  Sender: FDA-Public Use
  Company Number: 2015JUB00176

PATIENT
  Age: 18 Year
  Sex: Male

DRUGS (7)
  1. DAUNORUBICIN (DAUNORUBICIN) [Suspect]
     Active Substance: DAUNORUBICIN
  2. METHOTREXATE (METHOTREXATE) [Suspect]
     Active Substance: METHOTREXATE
     Route: 037
  3. VINCRISTINE (VINCRISTINE) [Suspect]
     Active Substance: VINCRISTINE
  4. PEGASPARAGINASE [Suspect]
     Active Substance: PEGASPARGASE
  5. CYTARABINE (CYTARABINE) [Suspect]
     Active Substance: CYTARABINE
     Route: 037
  6. PREDNISONE (PREDNISONE) UNKNOWN [Suspect]
     Active Substance: PREDNISONE
  7. IMATINIB [Suspect]
     Active Substance: IMATINIB

REACTIONS (10)
  - Oesophagitis [None]
  - Mental status changes [None]
  - Pancytopenia [None]
  - Pleural effusion [None]
  - Gastric ulcer [None]
  - Ascites [None]
  - Gastritis [None]
  - Pyrexia [None]
  - Haematochezia [None]
  - Haematemesis [None]
